FAERS Safety Report 8105004-3 (Version None)
Quarter: 2012Q1

REPORT INFORMATION
  Report Type: 
  Country: None (occurrence: None)
  Receive Date: 20120201
  Receipt Date: 20120123
  Transmission Date: 20120608
  Serious: Yes (Death, Hospitalization)
  Sender: FDA-Public Use
  Company Number: JP-GLAXOSMITHKLINE-B0775027A

PATIENT
  Sex: Male

DRUGS (6)
  1. SPIRIVA [Concomitant]
     Indication: CHRONIC OBSTRUCTIVE PULMONARY DISEASE
     Dosage: 1IUAX PER DAY
     Route: 055
     Dates: start: 20070101
  2. GASTROM [Concomitant]
     Indication: GASTRITIS
     Dosage: 15MG PER DAY
     Route: 048
     Dates: start: 20070101
  3. EPINASTINE HYDROCHLORIDE [Concomitant]
     Indication: ASTHMA
     Dosage: 20MG PER DAY
     Route: 048
     Dates: start: 20070101
  4. LANSOPRAZOLE [Concomitant]
     Indication: GASTROOESOPHAGEAL REFLUX DISEASE
     Dosage: 30MG PER DAY
     Route: 048
     Dates: start: 20070101
  5. UNIPHYL [Concomitant]
     Indication: ASTHMA
     Dosage: 400MG PER DAY
     Route: 048
     Dates: start: 20070101
  6. FLUTICASONE PROPIONATE/SALMETEROL [Suspect]
     Indication: CHRONIC OBSTRUCTIVE PULMONARY DISEASE
     Dosage: 500MCG PER DAY
     Route: 055
     Dates: start: 20070101

REACTIONS (11)
  - PNEUMONIA INFLUENZAL [None]
  - DYSPNOEA [None]
  - LUNG DISORDER [None]
  - ATRIOVENTRICULAR BLOCK [None]
  - ASTHMA [None]
  - CHRONIC OBSTRUCTIVE PULMONARY DISEASE [None]
  - INFECTION [None]
  - RESPIRATORY FAILURE [None]
  - PROCALCITONIN INCREASED [None]
  - PYREXIA [None]
  - PRODUCTIVE COUGH [None]
